FAERS Safety Report 8310679-X (Version None)
Quarter: 2012Q2

REPORT INFORMATION
  Report Type: 
  Country: None (occurrence: None)
  Receive Date: 20120425
  Receipt Date: 20120417
  Transmission Date: 20120825
  Serious: Yes (Hospitalization, Other)
  Sender: FDA-Public Use
  Company Number: GR-UCBSA-052337

PATIENT
  Age: 45 Year
  Sex: Male
  Weight: 77 kg

DRUGS (8)
  1. NEUPRO [Suspect]
     Route: 062
     Dates: start: 20110207, end: 20110213
  2. NEUPRO [Suspect]
     Indication: PARKINSON'S DISEASE
     Route: 062
     Dates: start: 20110221, end: 20111229
  3. MILITHIN [Concomitant]
     Indication: BIPOLAR DISORDER
     Dates: start: 20100503
  4. PRAMIPEXOLE DIHYDROCHLORIDE [Suspect]
     Dates: start: 20011101, end: 20110207
  5. STALEVO 100 [Suspect]
     Indication: PARKINSON'S DISEASE
     Dates: start: 20070715, end: 20111229
  6. NEUPRO [Suspect]
     Route: 062
     Dates: start: 20110214, end: 20110220
  7. SEROQUEL [Concomitant]
     Indication: BIPOLAR DISORDER
     Dates: start: 20100503
  8. PRAMIPEXOLE DIHYDROCHLORIDE [Suspect]
     Indication: PARKINSON'S DISEASE
     Dates: start: 20110208, end: 20111229

REACTIONS (1)
  - IMPULSE-CONTROL DISORDER [None]
